FAERS Safety Report 4925514-7 (Version None)
Quarter: 2006Q1

REPORT INFORMATION
  Report Type: 
  Country: None (occurrence: None)
  Receive Date: 20060228
  Receipt Date: 20050309
  Transmission Date: 20060701
  Serious: No
  Sender: FDA-Public Use
  Company Number: US-GLAXOSMITHKLINE-A0549043A

PATIENT
  Age: 48 Year
  Sex: Male

DRUGS (6)
  1. LAMICTAL [Suspect]
     Dosage: 100MG PER DAY
     Route: 048
     Dates: start: 20050216
  2. DEPAKOTE [Concomitant]
  3. WELLBUTRIN XL [Concomitant]
  4. LEXAPRO [Concomitant]
  5. PROVIGIL [Concomitant]
  6. IRON SUPPLEMENT [Concomitant]

REACTIONS (2)
  - DRUG INEFFECTIVE [None]
  - WOUND SECRETION [None]
